FAERS Safety Report 9580279 (Version 1)
Quarter: 2013Q4

REPORT INFORMATION
  Report Type: Spontaneous
  Country: US (occurrence: US)
  Receive Date: 20131002
  Receipt Date: 20131002
  Transmission Date: 20140711
  Serious: Yes (Other)
  Sender: FDA-Public Use
  Company Number: US-TEVA-435092USA

PATIENT
  Sex: Male

DRUGS (1)
  1. COPAXONE [Suspect]

REACTIONS (4)
  - Injection site necrosis [Unknown]
  - Injection site erythema [Unknown]
  - Injection site scab [Unknown]
  - Injection site swelling [Unknown]
